FAERS Safety Report 18412011 (Version 1)
Quarter: 2020Q4

REPORT INFORMATION
  Report Type: Spontaneous
  Country: FR (occurrence: FR)
  Receive Date: 20201022
  Receipt Date: 20201022
  Transmission Date: 20210114
  Serious: Yes (Other)
  Sender: FDA-Public Use
  Company Number: FR-AUROBINDO-AUR-APL-2020-052743

PATIENT
  Age: 36 Year
  Sex: Female
  Weight: 98 kg

DRUGS (1)
  1. TRAMADOL ARROW L.P. 100 MG PROLONGED RELEASE TABLETS USP 100MG [Suspect]
     Active Substance: TRAMADOL
     Indication: TOOTHACHE
     Dosage: 1 DOSAGE FORM
     Route: 048
     Dates: start: 20200927, end: 20200927

REACTIONS (9)
  - Pruritus [Recovering/Resolving]
  - Tachyphrenia [Recovering/Resolving]
  - Hallucination, visual [Recovering/Resolving]
  - Hyposmia [Recovering/Resolving]
  - Insomnia [Recovering/Resolving]
  - Delirium [Recovering/Resolving]
  - Tachycardia [Recovering/Resolving]
  - Muscle spasms [Recovering/Resolving]
  - Anxiety [Recovering/Resolving]

NARRATIVE: CASE EVENT DATE: 20200927
